FAERS Safety Report 5987574-4 (Version None)
Quarter: 2008Q4

REPORT INFORMATION
  Report Type: 
  Country: None (occurrence: None)
  Receive Date: 20081128
  Receipt Date: 20080808
  Transmission Date: 20090506
  Serious: Yes (Other)
  Sender: FDA-Public Use
  Company Number: 310042J08USA

PATIENT
  Age: 35 Year
  Sex: Female
  Weight: 111.1313 kg

DRUGS (3)
  1. GONAL-F [Suspect]
     Indication: INFERTILITY
     Dosage: 225 IU, 2 IN 1 DAYS
     Dates: start: 20080522, end: 20080531
  2. GANIRELIX ACETATE INJECTION [Suspect]
     Indication: IN VITRO FERTILISATION
     Dosage: 2 DOSAGE FORMS
     Dates: start: 20080101
  3. ORAL CONTRACEPTIVES (ORAL CONTRACEPTIVE NOS) [Concomitant]

REACTIONS (2)
  - ABORTION SPONTANEOUS [None]
  - VAGINAL HAEMORRHAGE [None]
